FAERS Safety Report 24707700 (Version 2)
Quarter: 2025Q1

REPORT INFORMATION
  Report Type: Spontaneous
  Country: US (occurrence: US)
  Receive Date: 20241206
  Receipt Date: 20250220
  Transmission Date: 20250409
  Serious: No
  Sender: PFIZER
  Company Number: US-PFIZER INC-202400317299

PATIENT
  Age: 65 Year
  Sex: Female

DRUGS (4)
  1. XELJANZ [Suspect]
     Active Substance: TOFACITINIB CITRATE
     Dosage: 5 MG, 2X/DAY
     Route: 048
     Dates: start: 2020
  2. METFORMIN [Concomitant]
     Active Substance: METFORMIN HYDROCHLORIDE
     Indication: Blood glucose abnormal
  3. JARDIANCE [Concomitant]
     Active Substance: EMPAGLIFLOZIN
  4. IRON [Concomitant]
     Active Substance: IRON

REACTIONS (5)
  - Condition aggravated [Not Recovered/Not Resolved]
  - Memory impairment [Recovered/Resolved]
  - Fungal infection [Recovered/Resolved]
  - Anaemia [Not Recovered/Not Resolved]
  - Drug effect less than expected [Unknown]

NARRATIVE: CASE EVENT DATE: 20241202
